FAERS Safety Report 4624030-X (Version None)
Quarter: 2005Q1

REPORT INFORMATION
  Report Type: 
  Country: None (occurrence: None)
  Receive Date: 20050329
  Receipt Date: 20050323
  Transmission Date: 20050727
  Serious: Yes (Disabling)
  Sender: FDA-Public Use
  Company Number: 2005021275

PATIENT
  Age: 73 Year
  Sex: Female

DRUGS (6)
  1. LIPITOR [Suspect]
     Indication: HYPERLIPIDAEMIA
     Dosage: 10 MG (1 IN 1 D); ORAL
     Route: 048
     Dates: start: 20050120, end: 20050125
  2. TICLOPIDINE HCL [Concomitant]
  3. PERINDOPRIL ERBUMINE [Concomitant]
  4. CANDESARTAN CILEXETIL [Concomitant]
  5. AMLODIPINE BESYLATE [Concomitant]
  6. TOCOPHERYL NICOTINATE [Concomitant]

REACTIONS (7)
  - ABASIA [None]
  - ABDOMINAL DISTENSION [None]
  - ASTHENIA [None]
  - GAIT DISTURBANCE [None]
  - INSOMNIA [None]
  - MOBILITY DECREASED [None]
  - MUSCULAR WEAKNESS [None]
